FAERS Safety Report 19318829 (Version 1)
Quarter: 2021Q2

REPORT INFORMATION
  Report Type: Spontaneous
  Country: AU (occurrence: AU)
  Receive Date: 20210527
  Receipt Date: 20210527
  Transmission Date: 20210717
  Serious: Yes (Hospitalization)
  Sender: FDA-Public Use
  Company Number: None

PATIENT
  Age: 76 Year
  Sex: Female

DRUGS (1)
  1. PROLIA [Suspect]
     Active Substance: DENOSUMAB
     Dosage: OTHER FREQUENCY:6 MONTHLY;?
     Route: 058

REACTIONS (3)
  - Femur fracture [None]
  - Stress fracture [None]
  - Pathological fracture [None]

NARRATIVE: CASE EVENT DATE: 20210521
